FAERS Safety Report 20329847 (Version 2)
Quarter: 2022Q1

REPORT INFORMATION
  Report Type: Report from Study
  Country: US (occurrence: US)
  Receive Date: 20220112
  Receipt Date: 20220212
  Transmission Date: 20220424
  Serious: No
  Sender: FDA-Public Use
  Company Number: US-NOVARTISTESTPH-NVSC2022US003408

PATIENT
  Sex: Female
  Weight: 77.1 kg

DRUGS (2)
  1. GILENYA [Suspect]
     Active Substance: FINGOLIMOD HYDROCHLORIDE
     Indication: Multiple sclerosis
     Dosage: 0.5 MG, QD
     Route: 048
     Dates: start: 202107
  2. VITAMINS [Concomitant]
     Active Substance: VITAMINS
     Indication: Pregnancy
     Dosage: UNK
     Route: 065

REACTIONS (1)
  - Maternal exposure before pregnancy [Unknown]
